FAERS Safety Report 24916141 (Version 1)
Quarter: 2025Q1

REPORT INFORMATION
  Report Type: Report from Study
  Country: IT (occurrence: IT)
  Receive Date: 20250203
  Receipt Date: 20250203
  Transmission Date: 20250409
  Serious: Yes (Other)
  Sender: GILEAD
  Company Number: IT-GILEAD-2025-0701651

PATIENT
  Age: 54 Year

DRUGS (1)
  1. EFAVIRENZ\EMTRICITABINE\TENOFOVIR DISOPROXIL FUMARATE [Suspect]
     Active Substance: EFAVIRENZ\EMTRICITABINE\TENOFOVIR DISOPROXIL FUMARATE
     Indication: HIV infection
     Dosage: 1 PILL PER DAY
     Route: 048
     Dates: start: 2013, end: 201706

REACTIONS (3)
  - Hepatitis C [Recovered/Resolved]
  - Nightmare [Unknown]
  - Poor quality sleep [Unknown]

NARRATIVE: CASE EVENT DATE: 20150101
